FAERS Safety Report 4851412-3 (Version None)
Quarter: 2005Q4

REPORT INFORMATION
  Report Type: 
  Country: None (occurrence: None)
  Receive Date: 20051212
  Receipt Date: 20050906
  Transmission Date: 20060501
  Serious: Yes (Life-Threatening, Hospitalization, Other)
  Sender: FDA-Public Use
  Company Number: GB-BRISTOL-MYERS SQUIBB COMPANY-13102264

PATIENT
  Age: 18 Year
  Sex: Female
  Weight: 40 kg

DRUGS (12)
  1. ABILIFY [Suspect]
     Indication: DEPRESSION
     Route: 048
     Dates: start: 20050816, end: 20050828
  2. HALOPERIDOL [Concomitant]
     Indication: PSYCHOTIC DISORDER
     Route: 030
     Dates: start: 20050827, end: 20050828
  3. HALOPERIDOL [Concomitant]
     Indication: ANXIETY
     Route: 030
     Dates: start: 20050827, end: 20050828
  4. THIAMINE [Concomitant]
  5. AMOXICILLIN [Concomitant]
  6. LIQUID NUTRITIONAL [Concomitant]
  7. DIAZEPAM [Concomitant]
     Indication: ANXIETY
     Dosage: DOSAGE: 2-6 MG DAILY
     Route: 048
     Dates: start: 20050816, end: 20050825
  8. DIAZEPAM [Concomitant]
     Indication: PSYCHOTIC DISORDER
     Dosage: DOSAGE: 2-6 MG DAILY
     Route: 048
     Dates: start: 20050816, end: 20050825
  9. LORAZEPAM [Concomitant]
     Indication: ANXIETY
     Route: 048
     Dates: start: 20050824, end: 20050828
  10. LORAZEPAM [Concomitant]
     Indication: PSYCHOTIC DISORDER
     Route: 048
     Dates: start: 20050824, end: 20050828
  11. LORAZEPAM [Concomitant]
     Route: 030
     Dates: start: 20050827, end: 20050828
  12. LORAZEPAM [Concomitant]
     Route: 030
     Dates: start: 20050827, end: 20050828

REACTIONS (7)
  - BLOOD CREATINE PHOSPHOKINASE INCREASED [None]
  - CATATONIA [None]
  - FLAT AFFECT [None]
  - MUSCLE RIGIDITY [None]
  - NEUROLEPTIC MALIGNANT SYNDROME [None]
  - PYREXIA [None]
  - WHITE BLOOD CELL COUNT INCREASED [None]
